FAERS Safety Report 10128261 (Version 1)
Quarter: 2014Q2

REPORT INFORMATION
  Report Type: Spontaneous
  Country: US (occurrence: US)
  Receive Date: 20140428
  Receipt Date: 20140428
  Transmission Date: 20141212
  Serious: No
  Sender: FDA-Public Use
  Company Number: US-BIOGENIDEC-2014BI036019

PATIENT
  Age: 48 Year
  Sex: Female

DRUGS (5)
  1. TECFIDERA [Suspect]
     Indication: MULTIPLE SCLEROSIS
     Route: 048
     Dates: start: 20130401
  2. LOSARTAN [Concomitant]
  3. SIMVASTATIN [Concomitant]
  4. SYNTHROID [Concomitant]
  5. ZYRTEC [Concomitant]

REACTIONS (1)
  - Cough [Unknown]
